FAERS Safety Report 6076754 (Version 26)
Quarter: 2013Q3

REPORT INFORMATION
  Report Type: Spontaneous
  Country: US (occurrence: US)
  Receive Date: 20060705
  Receipt Date: 20130712
  Transmission Date: 20140515
  Serious: Yes (Hospitalization, Other)
  Sender: FDA-Public Use
  Company Number: PHEH2006US08130

PATIENT
  Age: 50 Year
  Sex: Male
  Weight: 69 kg

DRUGS (59)
  1. OXYCODONE [Concomitant]
  2. OXYCONTIN [Concomitant]
  3. PERCOCET [Concomitant]
  4. PERI-COLACE [Concomitant]
  5. ASPIRIN ^BAYER^ [Concomitant]
  6. FRAGMIN                                 /NET/ [Concomitant]
  7. PLAQUENIL [Concomitant]
  8. HUMIRA [Concomitant]
  9. DETROL                                  /USA/ [Concomitant]
  10. NYSTATIN [Concomitant]
  11. CLONAZEPAM [Concomitant]
  12. CONCERTA [Concomitant]
  13. EFEXOR XR [Concomitant]
  14. ZESTRIL [Concomitant]
  15. METOPROLOL [Concomitant]
     Dosage: 25 MG, DAILY
     Dates: start: 20080314
  16. COUMADINE [Concomitant]
  17. AMIODARONE [Concomitant]
  18. DIFLUCAN [Concomitant]
     Dosage: 100 MG, QD
     Dates: start: 20080315
  19. FLOMAX ^BOEHRINGER INGELHEIM^ [Concomitant]
  20. LIDOCAINE [Concomitant]
  21. ZOMETA [Suspect]
     Indication: PLASMA CELL MYELOMA
     Dosage: 4 MG, QMO
     Route: 042
     Dates: start: 200208, end: 20040204
  22. ZOMETA [Suspect]
     Indication: OSTEOPOROSIS
  23. AREDIA [Suspect]
     Indication: OSTEOPOROSIS
     Dosage: 90 MG, QMO
     Route: 042
     Dates: start: 2000
  24. PREDNISONE [Suspect]
     Indication: INFLAMMATION
     Dosage: 20 MG, QD
  25. TETANUS VACCINE ^PASTEUR^ [Concomitant]
  26. BUSPAR [Concomitant]
  27. PROPOXYPHENE NAPSYLATE W/ACETAMINOPHENE [Concomitant]
  28. METHADONE [Concomitant]
     Dosage: 150 MG, QD
  29. ZOLOFT [Concomitant]
     Dosage: 200 MG, QD
  30. CELEBREX [Concomitant]
  31. HYDROCODONE W/ACETAMINOPHEN [Concomitant]
  32. KLONOPIN [Concomitant]
  33. ELAVIL [Concomitant]
  34. AUGMENTIN [Concomitant]
  35. DIGOXIN [Concomitant]
  36. MIACALCIN [Concomitant]
     Indication: OSTEOPOROSIS
  37. WELLBUTRIN [Concomitant]
     Dosage: 150 MG, QD
  38. ACTONEL [Concomitant]
     Indication: OSTEOPOROSIS
     Dosage: 5 MG, QD
  39. PREVACID [Concomitant]
     Dosage: 30 MG, QD
  40. PROTONIX ^PHARMACIA^ [Concomitant]
     Dosage: 40 MG, QD
  41. VIOXX [Concomitant]
     Dosage: 25 MG, QD
  42. TESTOSTERONE [Concomitant]
     Dosage: 5 MG, QD
  43. CARDIZEM CD [Concomitant]
     Dosage: 180 MG, QD
  44. CANDESARTAN [Concomitant]
     Dosage: 60 MG, QD
  45. PENICILLIN NOS [Concomitant]
     Dosage: 500 MG, BID
  46. BACTRIM [Concomitant]
  47. CALCIUM [Concomitant]
     Dosage: 1500 MG, DAILY
  48. VITAMIN D [Concomitant]
     Dosage: 400 IU, DAILY
  49. CHEMOTHERAPEUTICS NOS [Concomitant]
  50. REMICADE [Concomitant]
  51. METHOTREXATE [Concomitant]
  52. EFFEXOR [Concomitant]
  53. FOLIC ACID [Concomitant]
  54. RITALIN [Concomitant]
  55. SENOKOT                                 /USA/ [Concomitant]
  56. MULTIVITAMINS [Concomitant]
  57. TRAZODONE [Concomitant]
  58. ATENOLOL [Concomitant]
  59. MIDRIN [Concomitant]

REACTIONS (171)
  - Basal cell carcinoma [Unknown]
  - Pyrexia [Unknown]
  - Dehydration [Unknown]
  - Hyperhidrosis [Unknown]
  - Asthenia [Unknown]
  - Confusional state [Unknown]
  - Plasma cell myeloma [Unknown]
  - Anaemia [Unknown]
  - Tongue discolouration [Unknown]
  - Glossodynia [Unknown]
  - Weight decreased [Unknown]
  - Bone cancer [Unknown]
  - Rheumatoid arthritis [Unknown]
  - Neck pain [Unknown]
  - Musculoskeletal pain [Unknown]
  - Back pain [Unknown]
  - Osteoarthritis [Unknown]
  - Fibromyalgia [Unknown]
  - Atrial fibrillation [Unknown]
  - Osteonecrosis of jaw [Unknown]
  - Osteitis [Unknown]
  - Pain [Unknown]
  - Bone disorder [Unknown]
  - Deformity [Unknown]
  - Mastication disorder [Unknown]
  - Skin ulcer [Unknown]
  - Impaired healing [Unknown]
  - Animal bite [Unknown]
  - Staphylococcal infection [Unknown]
  - Cyst [Unknown]
  - Anogenital warts [Unknown]
  - Back injury [Unknown]
  - Osteoporosis [Unknown]
  - Fracture [Unknown]
  - Hypertension [Unknown]
  - Limb injury [Unknown]
  - Cellulitis [Unknown]
  - Herpes zoster [Unknown]
  - Hypogonadism [Unknown]
  - Drug abuse [Unknown]
  - Rib fracture [Unknown]
  - Spinal fracture [Unknown]
  - Depression [Unknown]
  - Lymphoedema [Unknown]
  - Pulmonary congestion [Unknown]
  - Cough [Unknown]
  - Dyspnoea [Unknown]
  - Acrochordon [Unknown]
  - Bunion [Unknown]
  - Bone pain [Unknown]
  - Cardiac disorder [Unknown]
  - Tooth injury [Unknown]
  - Gingival recession [Unknown]
  - Vision blurred [Unknown]
  - Hypoacusis [Unknown]
  - Cataract [Unknown]
  - Blood creatine phosphokinase increased [Unknown]
  - Blood calcium decreased [Unknown]
  - Blood albumin decreased [Unknown]
  - Oedema peripheral [Unknown]
  - Haematuria [Unknown]
  - Azotaemia [Unknown]
  - Radius fracture [Unknown]
  - Skin papilloma [Unknown]
  - Penile wart [Unknown]
  - Neuralgia [Unknown]
  - Major depression [Unknown]
  - Generalised anxiety disorder [Unknown]
  - Disturbance in attention [Unknown]
  - Fall [Unknown]
  - Abdominal pain [Unknown]
  - Small intestinal obstruction [Unknown]
  - Fistula [Unknown]
  - Oesophageal stenosis [Unknown]
  - Oral disorder [Unknown]
  - Scar [Unknown]
  - Second primary malignancy [Unknown]
  - Cervical radiculopathy [Unknown]
  - Multiple fractures [Unknown]
  - Spinal osteoarthritis [Unknown]
  - Intervertebral disc protrusion [Unknown]
  - Haemangioma [Unknown]
  - Spinal column stenosis [Unknown]
  - Bone marrow oedema [Unknown]
  - Hypokalaemia [Unknown]
  - Dilatation ventricular [Unknown]
  - Bacterial sepsis [Unknown]
  - Benign prostatic hyperplasia [Unknown]
  - Disseminated intravascular coagulation [Unknown]
  - Atelectasis [Unknown]
  - Pleural effusion [Unknown]
  - Hepatic cyst [Unknown]
  - Coronary artery disease [Unknown]
  - Arrhythmia [Unknown]
  - Cardiac output decreased [Unknown]
  - Oral candidiasis [Unknown]
  - Renal failure acute [Unknown]
  - Urinary tract infection [Unknown]
  - Thrombocytopenia [Unknown]
  - Chest pain [Unknown]
  - Hepatic cirrhosis [Unknown]
  - Splenomegaly [Unknown]
  - Myelopathy [Unknown]
  - Rectal haemorrhage [Unknown]
  - Photodermatosis [Unknown]
  - Dermatitis psoriasiform [Unknown]
  - Pathological fracture [Unknown]
  - Enterovesical fistula [Unknown]
  - Eye haemorrhage [Unknown]
  - Lumbar spinal stenosis [Unknown]
  - Facet joint syndrome [Unknown]
  - Foot deformity [Unknown]
  - Diverticulum [Unknown]
  - Pulmonary mass [Unknown]
  - Osteosclerosis [Unknown]
  - Tenosynovitis [Unknown]
  - Arteriosclerosis coronary artery [Unknown]
  - Varicocele [Unknown]
  - Epididymal cyst [Unknown]
  - Tracheobronchitis [Unknown]
  - Cerumen impaction [Unknown]
  - Rotator cuff syndrome [Unknown]
  - Poikiloderma [Unknown]
  - Hyperkeratosis [Unknown]
  - Photophobia [Unknown]
  - Synovitis [Unknown]
  - Intestinal perforation [Unknown]
  - Peritonitis [Unknown]
  - Narcotic bowel syndrome [Unknown]
  - Colonic fistula [Unknown]
  - Sleep apnoea syndrome [Unknown]
  - Failure to thrive [Unknown]
  - Disability [Unknown]
  - Spinal deformity [Unknown]
  - Knee deformity [Unknown]
  - Musculoskeletal stiffness [Unknown]
  - Cushingoid [Unknown]
  - Haematochezia [Unknown]
  - Pneumaturia [Unknown]
  - Swelling [Unknown]
  - Stomatitis [Unknown]
  - Skin exfoliation [Unknown]
  - Intervertebral disc space narrowing [Unknown]
  - Kyphoscoliosis [Unknown]
  - Spinal pain [Unknown]
  - Ecchymosis [Unknown]
  - Urinary incontinence [Unknown]
  - Amnesia [Unknown]
  - Gout [Unknown]
  - Bruxism [Unknown]
  - Headache [Unknown]
  - Myalgia [Unknown]
  - Pain in jaw [Unknown]
  - Joint crepitation [Unknown]
  - Asthma [Unknown]
  - Seasonal allergy [Unknown]
  - Sinusitis [Unknown]
  - Oropharyngeal pain [Unknown]
  - Excessive granulation tissue [Unknown]
  - Exposed bone in jaw [Unknown]
  - Oral herpes [Unknown]
  - Contusion [Unknown]
  - Poisoning [Unknown]
  - Pulmonary contusion [Unknown]
  - Deep vein thrombosis [Unknown]
  - Symbolic dysfunction [Unknown]
  - Decubitus ulcer [Unknown]
  - Balance disorder [Unknown]
  - Chronic obstructive pulmonary disease [Unknown]
  - Abdominal distension [Unknown]
  - Insomnia [Unknown]
